FAERS Safety Report 8922281 (Version 2)
Quarter: 2012Q4

REPORT INFORMATION
  Report Type: 
  Country: IE (occurrence: IE)
  Receive Date: 20121123
  Receipt Date: 20121213
  Transmission Date: 20130627
  Serious: Yes (Other)
  Sender: FDA-Public Use
  Company Number: IE-PFIZER INC-2012258629

PATIENT
  Age: 31 Year
  Sex: Female

DRUGS (2)
  1. EFEXOR XL [Suspect]
     Indication: DEPRESSION
     Dosage: 225 mg, daily
     Route: 048
     Dates: start: 20120929, end: 20121013
  2. QLAIRA [Concomitant]
     Indication: CONTRACEPTION
     Dosage: 1 DF, UNK
     Route: 048

REACTIONS (11)
  - Anxiety [Recovered/Resolved]
  - Flushing [Recovered/Resolved]
  - Sleep disorder [Recovered/Resolved]
  - Fatigue [Recovered/Resolved]
  - Nightmare [Recovered/Resolved]
  - Mood swings [Recovered/Resolved]
  - Irritability [Recovered/Resolved]
  - Hyperhidrosis [Recovered/Resolved]
  - Insomnia [Recovered/Resolved]
  - Tremor [Recovered/Resolved]
  - Malaise [Recovered/Resolved]
